FAERS Safety Report 8890235 (Version 1)
Quarter: 2012Q4

REPORT INFORMATION
  Report Type: 
  Country: BR (occurrence: BR)
  Receive Date: 20121107
  Receipt Date: 20121107
  Transmission Date: 20130627
  Serious: Yes (Other)
  Sender: FDA-Public Use
  Company Number: BR-PFIZER INC-2012274275

PATIENT
  Age: 42 Year
  Sex: Male
  Weight: 98 kg

DRUGS (5)
  1. FRONTAL [Suspect]
     Indication: PANIC DISORDER
     Dosage: UNK
     Dates: start: 2007
  2. APRAZ [Concomitant]
     Dosage: UNK
  3. CAPTOPRIL [Concomitant]
     Dosage: UNK
  4. CYMBALTA [Concomitant]
     Dosage: UNK
  5. OMEPRAZOLE [Concomitant]
     Dosage: UNK

REACTIONS (5)
  - Blood pressure abnormal [Unknown]
  - Blood pressure increased [Unknown]
  - Drug ineffective [Unknown]
  - Stress [Unknown]
  - Nervousness [Unknown]
